FAERS Safety Report 13295485 (Version 3)
Quarter: 2017Q2

REPORT INFORMATION
  Report Type: Report from Study
  Country: US (occurrence: US)
  Receive Date: 20170303
  Receipt Date: 20170413
  Transmission Date: 20170830
  Serious: Yes (Death, Hospitalization, Other)
  Sender: FDA-Public Use
  Company Number: US-GILEAD-2017-0260957

PATIENT
  Age: 60 Year
  Sex: Female

DRUGS (15)
  1. SPIRONOLACTONE. [Concomitant]
     Active Substance: SPIRONOLACTONE
  2. AMBRISENTAN [Suspect]
     Active Substance: AMBRISENTAN
     Indication: SARCOIDOSIS
     Dosage: 10 MG, QD
     Route: 065
     Dates: start: 20120703
  3. SERTRALINE [Concomitant]
     Active Substance: SERTRALINE HYDROCHLORIDE
  4. AMBRISENTAN [Suspect]
     Active Substance: AMBRISENTAN
     Indication: PULMONARY HYPERTENSION
  5. COUMADIN [Concomitant]
     Active Substance: WARFARIN SODIUM
  6. PROAIR HFA [Concomitant]
     Active Substance: ALBUTEROL SULFATE
  7. PREDNISONE. [Concomitant]
     Active Substance: PREDNISONE
  8. LEFLUNOMIDE. [Concomitant]
     Active Substance: LEFLUNOMIDE
  9. REMODULIN [Concomitant]
     Active Substance: TREPROSTINIL
  10. TRAMADOL. [Concomitant]
     Active Substance: TRAMADOL
  11. BUMETANIDE. [Concomitant]
     Active Substance: BUMETANIDE
  12. SILDENAFIL. [Concomitant]
     Active Substance: SILDENAFIL
  13. POTASSIUM [Concomitant]
     Active Substance: POTASSIUM
  14. GABAPENTIN. [Concomitant]
     Active Substance: GABAPENTIN
  15. ALENDRONATE [Concomitant]
     Active Substance: ALENDRONATE SODIUM

REACTIONS (1)
  - Pulmonary hypertension [Fatal]
